FAERS Safety Report 4738073-9 (Version None)
Quarter: 2005Q3

REPORT INFORMATION
  Report Type: 
  Country: None (occurrence: None)
  Receive Date: 20050809
  Receipt Date: 20050804
  Transmission Date: 20060218
  Serious: Yes (Death)
  Sender: FDA-Public Use
  Company Number: US-JNJFOC-20031202385

PATIENT
  Sex: Male

DRUGS (6)
  1. DURAGESIC-100 [Suspect]
     Route: 062
     Dates: start: 20030520, end: 20030520
  2. CELEBREX [Concomitant]
  3. DARVOCET-N 100 [Concomitant]
  4. DARVOCET-N 100 [Concomitant]
  5. PERCOCET [Concomitant]
  6. PERCOCET [Concomitant]

REACTIONS (2)
  - DRUG TOXICITY [None]
  - LETHARGY [None]
